FAERS Safety Report 12216507 (Version 2)
Quarter: 2016Q2

REPORT INFORMATION
  Report Type: Spontaneous
  Country: CZ (occurrence: CZ)
  Receive Date: 20160329
  Receipt Date: 20160412
  Transmission Date: 20160815
  Serious: Yes (Other)
  Sender: FDA-Public Use
  Company Number: CZ-OCTA-LIT03716CZ

PATIENT
  Age: 30 Year
  Sex: Male

DRUGS (1)
  1. HUMAN NORMAL IMMUNOGLOBULIN (IV) [Suspect]
     Active Substance: HUMAN IMMUNOGLOBULIN G
     Indication: MULTIPLE SCLEROSIS
     Route: 042

REACTIONS (6)
  - Psoriasis [Unknown]
  - Lymphadenopathy [Unknown]
  - Joint swelling [Unknown]
  - Malaise [Unknown]
  - Chills [Unknown]
  - Condition aggravated [Unknown]
